FAERS Safety Report 8974439 (Version 6)
Quarter: 2014Q1

REPORT INFORMATION
  Report Type: Spontaneous
  Country: US (occurrence: US)
  Receive Date: 20121219
  Receipt Date: 20140103
  Transmission Date: 20141002
  Serious: Yes (Hospitalization, Disabling, Other)
  Sender: FDA-Public Use
  Company Number: US-MERCK-1212USA006888

PATIENT
  Sex: Female
  Weight: 70.3 kg

DRUGS (5)
  1. FOSAMAX [Suspect]
     Indication: OSTEOPENIA
     Dosage: 70 MG, QW
     Route: 048
     Dates: start: 200503, end: 200802
  2. FOSAMAX [Suspect]
     Dosage: UNK, QW
     Route: 048
     Dates: start: 2009, end: 201101
  3. ALENDRONATE SODIUM [Suspect]
     Indication: OSTEOPENIA
     Dosage: 70 MG, QW
     Route: 048
     Dates: start: 200802, end: 200811
  4. CALCIUM (UNSPECIFIED) (+) VITAMIN D (UNSPECIFIED) [Concomitant]
     Indication: PRODUCT USED FOR UNKNOWN INDICATION
     Dosage: 600 MG, BID
     Dates: start: 2000
  5. VITAMINS (UNSPECIFIED) [Concomitant]
     Indication: ROUTINE HEALTH MAINTENANCE
     Dosage: UNK, QD
     Dates: start: 2000

REACTIONS (35)
  - Intramedullary rod insertion [Recovering/Resolving]
  - Hysterectomy [Unknown]
  - Wrist fracture [Unknown]
  - Open reduction of fracture [Unknown]
  - Osteoporosis [Unknown]
  - Femur fracture [Unknown]
  - Fall [Unknown]
  - Stress fracture [Unknown]
  - Femur fracture [Recovering/Resolving]
  - Hand fracture [Unknown]
  - Foot fracture [Unknown]
  - Foot fracture [Unknown]
  - Fracture nonunion [Unknown]
  - Ligament operation [Unknown]
  - Ligament rupture [Unknown]
  - Medial tibial stress syndrome [Unknown]
  - Onychomycosis [Unknown]
  - Body height decreased [Unknown]
  - Drug intolerance [Unknown]
  - Inappropriate schedule of drug administration [Unknown]
  - Tendonitis [Unknown]
  - Tarsal tunnel syndrome [Unknown]
  - Carpal tunnel decompression [Unknown]
  - Carpal tunnel syndrome [Unknown]
  - Spinal osteoarthritis [Unknown]
  - Hot flush [Unknown]
  - Foot fracture [Unknown]
  - Phlebolith [Unknown]
  - Arteriovenous malformation [Unknown]
  - Scoliosis [Unknown]
  - Facet joint syndrome [Unknown]
  - Osteoarthritis [Unknown]
  - Dyspepsia [Unknown]
  - Drug ineffective [Unknown]
  - Pain in extremity [Not Recovered/Not Resolved]
